FAERS Safety Report 25110794 (Version 1)
Quarter: 2025Q1

REPORT INFORMATION
  Report Type: Spontaneous
  Country: US (occurrence: US)
  Receive Date: 20250324
  Receipt Date: 20250324
  Transmission Date: 20250409
  Serious: Yes (Other)
  Sender: ROCHE
  Company Number: US-ROCHE-10000230108

PATIENT
  Age: 61 Year
  Sex: Female

DRUGS (1)
  1. ACTEMRA ACTPEN [Suspect]
     Active Substance: TOCILIZUMAB
     Indication: Giant cell arteritis
     Dosage: STRENGTH: 162MG/0.9ML
     Route: 058

REACTIONS (5)
  - Myocardial infarction [Unknown]
  - Arthralgia [Unknown]
  - Headache [Unknown]
  - Neck pain [Unknown]
  - Cerebrovascular accident [Unknown]
